FAERS Safety Report 4700014-8 (Version None)
Quarter: 2005Q2

REPORT INFORMATION
  Report Type: 
  Country: None (occurrence: None)
  Receive Date: 20050627
  Receipt Date: 20050531
  Transmission Date: 20051028
  Serious: Yes (Hospitalization, Other)
  Sender: FDA-Public Use
  Company Number: PHNR2005AU00922

PATIENT
  Age: 21 Year
  Sex: Male

DRUGS (5)
  1. CLOZARIL [Suspect]
     Indication: SCHIZOPHRENIA
     Dosage: 13-500 MG,DAILY
     Dates: start: 20030908, end: 20050531
  2. AMISULPRIDE [Suspect]
     Dosage: 200 MG
     Dates: end: 20050517
  3. AMISULPRIDE [Suspect]
     Dosage: 400 MG
     Dates: start: 20050517
  4. DIAZEPAM [Concomitant]
  5. HALOPERIDOL [Concomitant]

REACTIONS (4)
  - AGRANULOCYTOSIS [None]
  - MENTAL DISORDER [None]
  - NEUTROPHIL COUNT DECREASED [None]
  - WHITE BLOOD CELL COUNT DECREASED [None]
